FAERS Safety Report 9352729 (Version 1)
Quarter: 2013Q2

REPORT INFORMATION
  Report Type: Spontaneous
  Country: US (occurrence: None)
  Receive Date: 20130614
  Receipt Date: 20130614
  Transmission Date: 20140414
  Serious: No
  Sender: FDA-Public Use
  Company Number: None

PATIENT
  Age: 70 Year
  Sex: Female

DRUGS (1)
  1. SUTENT [Suspect]
     Indication: RENAL CANCER
     Dosage: 25MG DAILY FOR 4 WEEKS  ON 4 WKS OF 2
     Route: 048
     Dates: start: 20121005

REACTIONS (7)
  - Stomatitis [None]
  - Diarrhoea [None]
  - Lip swelling [None]
  - Tenderness [None]
  - Skin exfoliation [None]
  - Fatigue [None]
  - Feeling cold [None]
